FAERS Safety Report 17251632 (Version 7)
Quarter: 2021Q1

REPORT INFORMATION
  Report Type: Spontaneous
  Country: US (occurrence: US)
  Receive Date: 20200109
  Receipt Date: 20210325
  Transmission Date: 20210419
  Serious: Yes (Hospitalization, Other)
  Sender: FDA-Public Use
  Company Number: US-PFIZER INC-2020008799

PATIENT
  Age: 50 Year
  Sex: Male

DRUGS (3)
  1. LYRICA [Suspect]
     Active Substance: PREGABALIN
     Dosage: UNK
  2. ATORVASTATIN [Concomitant]
     Active Substance: ATORVASTATIN
  3. REPATHA [Concomitant]
     Active Substance: EVOLOCUMAB
     Dosage: UNK (INJECTIONS IN STOMACH TWICE A MONTH)

REACTIONS (12)
  - Back injury [Unknown]
  - Road traffic accident [Unknown]
  - Limb injury [Unknown]
  - Myocardial infarction [Unknown]
  - Neuropathy peripheral [Unknown]
  - Dysstasia [Unknown]
  - Hypertension [Unknown]
  - Intervertebral disc degeneration [Unknown]
  - Neck injury [Unknown]
  - Hypoaesthesia [Unknown]
  - Pain in extremity [Unknown]
  - Cerebrovascular accident [Unknown]

NARRATIVE: CASE EVENT DATE: 2010
